FAERS Safety Report 21335903 (Version 1)
Quarter: 2022Q3

REPORT INFORMATION
  Report Type: Other
  Country: CA (occurrence: None)
  Receive Date: 20220915
  Receipt Date: 20220915
  Transmission Date: 20221027
  Serious: Yes (Other)
  Sender: FDA-Public Use
  Company Number: CA-ROCHE-2371378

PATIENT
  Age: 71 Year
  Sex: Female
  Weight: 66.5 kg

DRUGS (22)
  1. ACTEMRA [Suspect]
     Active Substance: TOCILIZUMAB
     Indication: Giant cell arteritis
     Route: 058
     Dates: start: 20190430
  2. NORVASC [Concomitant]
     Active Substance: AMLODIPINE BESYLATE
     Route: 048
  3. BOTOX [Concomitant]
     Active Substance: ONABOTULINUMTOXINA
  4. CALCIUM [Concomitant]
     Active Substance: CALCIUM
     Route: 048
  5. DEXILANT [Concomitant]
     Active Substance: DEXLANSOPRAZOLE
     Route: 048
  6. FOLIC ACID [Concomitant]
     Active Substance: FOLIC ACID
  7. HYDROCHLOROTHIAZIDE [Concomitant]
     Active Substance: HYDROCHLOROTHIAZIDE
     Route: 048
  8. LORAZEPAM [Concomitant]
     Active Substance: LORAZEPAM
  9. LUMIGAN [Concomitant]
     Active Substance: BIMATOPROST
     Dosage: AT BEDTIME
  10. METHOTREXATE [Concomitant]
     Active Substance: METHOTREXATE
     Route: 058
  11. PREDNISONE [Concomitant]
     Active Substance: PREDNISONE
     Route: 048
     Dates: end: 201904
  12. PREDNISONE [Concomitant]
     Active Substance: PREDNISONE
     Dosage: TAPERING BY 5MG/MONTH
     Route: 048
     Dates: start: 201904
  13. PROPRANOLOL HYDROCHLORIDE [Concomitant]
     Active Substance: PROPRANOLOL HYDROCHLORIDE
  14. ACTONEL [Concomitant]
     Active Substance: RISEDRONATE SODIUM
     Route: 048
  15. SEPTRA [Concomitant]
     Active Substance: SULFAMETHOXAZOLE\TRIMETHOPRIM
  16. SULFATRIM [Concomitant]
     Active Substance: SULFAMETHOXAZOLE\TRIMETHOPRIM
  17. VITAMIN D3 [Concomitant]
     Active Substance: CHOLECALCIFEROL
     Route: 048
  18. CODEINE [Concomitant]
     Active Substance: CODEINE
  19. ADVIL [Concomitant]
     Active Substance: IBUPROFEN
  20. AMLODIPINE [Concomitant]
     Active Substance: AMLODIPINE BESYLATE
     Route: 048
  21. FLONASE [Concomitant]
     Active Substance: FLUTICASONE PROPIONATE
     Route: 055
  22. VITAMIN B12 [Concomitant]
     Active Substance: CYANOCOBALAMIN

REACTIONS (19)
  - Aortic stenosis [Unknown]
  - Hypotension [Unknown]
  - Iliac artery stenosis [Unknown]
  - Arterial bruit [Unknown]
  - Limb discomfort [Not Recovered/Not Resolved]
  - Off label use [Unknown]
  - Pedal pulse decreased [Unknown]
  - Peripheral coldness [Unknown]
  - Cushingoid [Unknown]
  - Weight decreased [Unknown]
  - Peripheral pulse decreased [Unknown]
  - Peripheral vascular disorder [Unknown]
  - Dizziness [Unknown]
  - Headache [Recovered/Resolved]
  - Heart rate increased [Unknown]
  - Intermittent claudication [Unknown]
  - Pulse abnormal [Unknown]
  - Pallor [Unknown]
  - Pulse absent [Unknown]

NARRATIVE: CASE EVENT DATE: 20200101
